FAERS Safety Report 9730416 (Version 2)
Quarter: 2014Q1

REPORT INFORMATION
  Report Type: Spontaneous
  Country: BE (occurrence: BE)
  Receive Date: 20131202
  Receipt Date: 20140312
  Transmission Date: 20141002
  Serious: Yes (Life-Threatening, Hospitalization, Other)
  Sender: FDA-Public Use
  Company Number: BE-NOVOPROD-393933

PATIENT
  Age: 55 Year
  Sex: Male
  Weight: 68 kg

DRUGS (8)
  1. VICTOZA [Suspect]
     Indication: DIABETES MELLITUS
     Dosage: UNK
     Route: 065
     Dates: start: 2012, end: 201306
  2. VICTOZA [Suspect]
     Dosage: UNK (INCREASE TO 1.8 MG)
     Route: 065
     Dates: start: 201306
  3. PLAVIX [Concomitant]
     Dosage: UNK (QD)
     Dates: start: 2007
  4. GLUCOPHAGE [Concomitant]
     Dosage: UNK (BID)
     Dates: start: 1998
  5. UNI DIAMICRON [Concomitant]
     Dosage: UNK ( 1 TAB)
     Dates: start: 2009
  6. ZOCOR [Concomitant]
  7. FORZATEN [Concomitant]
  8. LEXOTAN [Concomitant]

REACTIONS (1)
  - Lung squamous cell carcinoma stage III [Not Recovered/Not Resolved]
